FAERS Safety Report 14843830 (Version 1)
Quarter: 2018Q2

REPORT INFORMATION
  Report Type: Spontaneous
  Country: US (occurrence: US)
  Receive Date: 20180503
  Receipt Date: 20180503
  Transmission Date: 20180711
  Serious: No
  Sender: FDA-Public Use
  Company Number: US-ABBVIE-18P-163-2262025-00

PATIENT
  Sex: Female

DRUGS (2)
  1. MAVYRET [Suspect]
     Active Substance: GLECAPREVIR\PIBRENTASVIR
     Indication: HEPATITIS C
     Route: 048
     Dates: end: 20180124
  2. REMEROL [Concomitant]
     Indication: ANXIETY
     Route: 065

REACTIONS (9)
  - Anxiety [Unknown]
  - Intervertebral disc protrusion [Unknown]
  - Periarthritis [Unknown]
  - Chronic obstructive pulmonary disease [Unknown]
  - Pulmonary mass [Unknown]
  - Atrial fibrillation [Unknown]
  - Insomnia [Unknown]
  - Thyroid mass [Unknown]
  - Headache [Unknown]
